FAERS Safety Report 7416791-1 (Version None)
Quarter: 2011Q2

REPORT INFORMATION
  Report Type: 
  Country: None (occurrence: None)
  Receive Date: 20110406
  Receipt Date: 20110330
  Transmission Date: 20111010
  Serious: Yes (Other)
  Sender: FDA-Public Use
  Company Number: 2011SP014700

PATIENT
  Sex: Female

DRUGS (1)
  1. NUVARING [Suspect]
     Indication: CONTRACEPTION

REACTIONS (4)
  - SPEECH DISORDER [None]
  - COORDINATION ABNORMAL [None]
  - HYPOAESTHESIA [None]
  - BLINDNESS [None]
